FAERS Safety Report 4401439-0 (Version None)
Quarter: 2004Q3

REPORT INFORMATION
  Report Type: 
  Country: None (occurrence: None)
  Receive Date: 20040907
  Receipt Date: 20040505
  Transmission Date: 20050211
  Serious: No
  Sender: FDA-Public Use
  Company Number: US-BRISTOL-MYERS SQUIBB COMPANY-12580791

PATIENT
  Age: 55 Year
  Sex: Female
  Weight: 103 kg

DRUGS (8)
  1. COUMADIN [Suspect]
     Indication: PROPHYLAXIS
     Route: 048
     Dates: start: 20031230
  2. HERCEPTIN [Concomitant]
     Indication: BREAST CANCER
     Route: 042
  3. TAXOL [Concomitant]
     Indication: BREAST CANCER
     Route: 042
  4. CARBOPLATIN [Concomitant]
     Indication: BREAST CANCER
  5. ALOXI [Concomitant]
     Indication: BREAST CANCER
     Route: 042
  6. DECADRON [Concomitant]
     Indication: BREAST CANCER
     Route: 048
  7. TYLENOL [Concomitant]
     Indication: BREAST CANCER
     Route: 048
  8. BENADRYL [Concomitant]
     Indication: BREAST CANCER
     Route: 048

REACTIONS (2)
  - PHOTOSENSITIVITY REACTION [None]
  - RASH [None]
